FAERS Safety Report 7980367-8 (Version None)
Quarter: 2011Q4

REPORT INFORMATION
  Report Type: 
  Country: None (occurrence: None)
  Receive Date: 20111214
  Receipt Date: 20111129
  Transmission Date: 20120403
  Serious: Yes (Hospitalization)
  Sender: FDA-Public Use
  Company Number: DE-PFIZER INC-2011279412

PATIENT
  Age: 49 Year
  Sex: Female

DRUGS (10)
  1. RAMIPRIL [Suspect]
     Dosage: 2.5 MG, 1X/DAY
     Route: 048
     Dates: start: 20101206, end: 20101209
  2. SEROQUEL [Suspect]
     Dosage: 175 MG, UNK
     Dates: start: 20101210
  3. MIRTAZAPINE [Suspect]
     Dosage: 15 MG/DAY
     Route: 048
     Dates: end: 20101110
  4. SEROQUEL [Suspect]
     Dosage: 50 MG, UNK
     Route: 048
     Dates: end: 20101001
  5. MIRTAZAPINE [Suspect]
     Dosage: 30MG/DAY
     Route: 048
     Dates: start: 20101111, end: 20101118
  6. MIRTAZAPINE [Suspect]
     Dosage: 45MG/DAY
     Route: 048
     Dates: start: 20101119, end: 20101206
  7. SEROQUEL [Suspect]
     Dosage: 100 MG, UNK
     Dates: end: 20101125
  8. PANTOPRAZOLE SODIUM [Suspect]
     Dosage: 20 MG, UNK
     Route: 048
     Dates: start: 20101130
  9. MIRTAZAPINE [Suspect]
     Dosage: 15MG/DAY
     Route: 048
     Dates: start: 20101207, end: 20101208
  10. SEROQUEL [Suspect]
     Dosage: 150 MG, UNK
     Dates: start: 20101126, end: 20101209

REACTIONS (9)
  - SKIN TIGHTNESS [None]
  - OEDEMA PERIPHERAL [None]
  - PAIN IN EXTREMITY [None]
  - PARAESTHESIA [None]
  - RESTLESSNESS [None]
  - PALPITATIONS [None]
  - BLISTER [None]
  - TACHYCARDIA [None]
  - OEDEMA [None]
